FAERS Safety Report 4969197-9 (Version None)
Quarter: 2006Q2

REPORT INFORMATION
  Report Type: 
  Country: None (occurrence: None)
  Receive Date: 20060411
  Receipt Date: 20060215
  Transmission Date: 20061013
  Serious: Yes (Other)
  Sender: FDA-Public Use
  Company Number: US-BRISTOL-MYERS SQUIBB COMPANY-13285283

PATIENT
  Age: 86 Year
  Sex: Female
  Weight: 47 kg

DRUGS (6)
  1. CARBOPLATIN [Suspect]
     Indication: OVARIAN CANCER
     Route: 042
     Dates: start: 20050501, end: 20050501
  2. CISPLATIN [Suspect]
     Indication: OVARIAN CANCER
     Route: 042
     Dates: start: 20060215, end: 20060215
  3. ANZEMET [Concomitant]
     Indication: PREMEDICATION
     Route: 042
  4. DECADRON [Concomitant]
     Indication: PREMEDICATION
     Route: 042
  5. TAGAMET [Concomitant]
     Indication: PREMEDICATION
     Route: 042
  6. BENADRYL [Concomitant]
     Indication: PREMEDICATION
     Route: 042

REACTIONS (6)
  - DYSPNOEA [None]
  - ERYTHEMA [None]
  - NAUSEA [None]
  - PRURITUS [None]
  - SWELLING FACE [None]
  - TONGUE DISORDER [None]
